FAERS Safety Report 9219938 (Version 1)
Quarter: 2013Q2

REPORT INFORMATION
  Report Type: Spontaneous
  Country: JP (occurrence: JP)
  Receive Date: 20130409
  Receipt Date: 20130409
  Transmission Date: 20140414
  Serious: Yes (Other)
  Sender: FDA-Public Use
  Company Number: JP-CUBIST PHARMACEUTICALS, INC.-2013CBST000311

PATIENT
  Age: 62 Year
  Sex: Male

DRUGS (3)
  1. CUBICIN [Suspect]
     Indication: INFECTIVE SPONDYLITIS
     Dosage: UNK UNK
     Route: 041
     Dates: start: 201302, end: 201303
  2. CUBICIN [Suspect]
     Indication: ARTHRITIS BACTERIAL
  3. CUBICIN [Suspect]
     Indication: OFF LABEL USE

REACTIONS (1)
  - Lung disorder [Recovered/Resolved]
